FAERS Safety Report 7008755-7 (Version None)
Quarter: 2010Q3

REPORT INFORMATION
  Report Type: 
  Country: None (occurrence: None)
  Receive Date: 20100922
  Receipt Date: 20100914
  Transmission Date: 20110219
  Serious: Yes (Other)
  Sender: FDA-Public Use
  Company Number: US-AMGEN-QUU431936

PATIENT
  Sex: Female
  Weight: 31 kg

DRUGS (2)
  1. ENBREL [Suspect]
     Indication: PSORIASIS
     Route: 058
     Dates: start: 20100207, end: 20100615
  2. PREVACID [Concomitant]
     Route: 048
     Dates: start: 20100604, end: 20100618

REACTIONS (3)
  - ABDOMINAL PAIN [None]
  - NAUSEA [None]
  - PSORIASIS [None]
